FAERS Safety Report 9650485 (Version 1)
Quarter: 2013Q4

REPORT INFORMATION
  Report Type: Spontaneous
  Country: US (occurrence: US)
  Receive Date: 20131029
  Receipt Date: 20131029
  Transmission Date: 20140711
  Serious: No
  Sender: FDA-Public Use
  Company Number: US-009507513-1310USA007628

PATIENT
  Sex: Female

DRUGS (3)
  1. VICTRELIS [Suspect]
     Indication: HEPATITIS C
     Dosage: 200 MG , 4 CAPSULES EVERY 8 HOURS
     Route: 048
     Dates: start: 201305
  2. CENTRUM SILVER [Suspect]
     Dosage: UNK
     Dates: start: 20130927
  3. IRON (UNSPECIFIED) [Concomitant]
     Dosage: UNKNOWN
     Route: 048

REACTIONS (2)
  - Joint swelling [Not Recovered/Not Resolved]
  - Local swelling [Not Recovered/Not Resolved]
